FAERS Safety Report 23350913 (Version 2)
Quarter: 2024Q1

REPORT INFORMATION
  Report Type: Spontaneous
  Country: US (occurrence: US)
  Receive Date: 20231229
  Receipt Date: 20240115
  Transmission Date: 20240409
  Serious: Yes (Other)
  Sender: FDA-Public Use
  Company Number: US-TAKEDA-2023TUS123174

PATIENT
  Age: 78 Year
  Sex: Female

DRUGS (5)
  1. GAMMAGARD LIQUID [Suspect]
     Active Substance: HUMAN IMMUNOGLOBULIN G
     Indication: Product used for unknown indication
     Dosage: UNK
     Route: 042
  2. DILANTIN [Suspect]
     Active Substance: PHENYTOIN
     Indication: Product used for unknown indication
     Dosage: UNK
     Route: 065
  3. PROZAC [Suspect]
     Active Substance: FLUOXETINE HYDROCHLORIDE
     Indication: Product used for unknown indication
     Dosage: UNK
     Route: 065
  4. POLYSORBATE 80 [Suspect]
     Active Substance: POLYSORBATE 80
     Indication: Product used for unknown indication
     Dosage: UNK
     Route: 065
  5. TECVAYLI [Concomitant]
     Active Substance: TECLISTAMAB-CQYV
     Indication: Plasma cell myeloma
     Dosage: UNK

REACTIONS (25)
  - Stevens-Johnson syndrome [Unknown]
  - Generalised tonic-clonic seizure [Unknown]
  - Sternal fracture [Unknown]
  - Immunodeficiency [Unknown]
  - Immunoglobulins decreased [Unknown]
  - Brain fog [Unknown]
  - Depression [Unknown]
  - Gluten sensitivity [Unknown]
  - Blood immunoglobulin G increased [Unknown]
  - Panic attack [Unknown]
  - Gastric mucosal lesion [Unknown]
  - Osteoporosis [Unknown]
  - Gastrointestinal disorder [Unknown]
  - Drug intolerance [Unknown]
  - Emotional distress [Unknown]
  - Rib fracture [Unknown]
  - Abdominal discomfort [Unknown]
  - Feeling abnormal [Unknown]
  - Influenza like illness [Unknown]
  - Headache [Unknown]
  - Migraine [Unknown]
  - Nausea [Unknown]
  - Fatigue [Unknown]
  - Dizziness [Unknown]
  - Product use in unapproved indication [Unknown]
